FAERS Safety Report 11647571 (Version 1)
Quarter: 2015Q4

REPORT INFORMATION
  Report Type: Spontaneous
  Country: US (occurrence: US)
  Receive Date: 20151021
  Receipt Date: 20151021
  Transmission Date: 20160304
  Serious: No
  Sender: FDA-Public Use
  Company Number: US-DRREDDYS-USA/USA/15/0049843

PATIENT
  Sex: Male
  Weight: 86.1 kg

DRUGS (2)
  1. ZENATANE [Suspect]
     Active Substance: ISOTRETINOIN
     Route: 048
     Dates: start: 201507
  2. ZENATANE [Suspect]
     Active Substance: ISOTRETINOIN
     Indication: ACNE
     Dosage: 40 MG DAILY ALTERNATING WITH 40 MG TWICE DAILY EVERY OTHER DAY
     Route: 048

REACTIONS (4)
  - Rash [Recovered/Resolved]
  - Erythema of eyelid [Recovered/Resolved]
  - Eyelids pruritus [Recovered/Resolved]
  - Eyelid rash [Recovered/Resolved]
